FAERS Safety Report 6751183-X (Version None)
Quarter: 2010Q2

REPORT INFORMATION
  Report Type: 
  Country: None (occurrence: None)
  Receive Date: 20100602
  Receipt Date: 20100521
  Transmission Date: 20101027
  Serious: Yes (Other)
  Sender: FDA-Public Use
  Company Number: US-ASTRAZENECA-2010SE25176

PATIENT
  Age: 16736 Day
  Sex: Male

DRUGS (5)
  1. SEROQUEL [Suspect]
     Route: 048
     Dates: start: 20050115
  2. ALPRAZOLAM [Concomitant]
     Dosage: 1-2 MG
     Dates: start: 20050122
  3. CYCLOBENZAPRINE [Concomitant]
     Dates: start: 20050131
  4. TEMAZEPAM [Concomitant]
     Dates: start: 20050131
  5. ZOLOFT [Concomitant]
     Dosage: 100 MG
     Dates: start: 20050201

REACTIONS (15)
  - AFFECTIVE DISORDER [None]
  - BENIGN PROSTATIC HYPERPLASIA [None]
  - DIABETES MELLITUS [None]
  - EMPHYSEMA [None]
  - ERECTILE DYSFUNCTION [None]
  - ESSENTIAL HYPERTENSION [None]
  - FATIGUE [None]
  - MALAISE [None]
  - MIXED HYPERLIPIDAEMIA [None]
  - NEUROPATHY PERIPHERAL [None]
  - OBESITY [None]
  - OVERWEIGHT [None]
  - RESPIRATORY DISORDER [None]
  - RESTLESS LEGS SYNDROME [None]
  - TYPE 2 DIABETES MELLITUS [None]
